FAERS Safety Report 9163956 (Version 1)
Quarter: 2013Q1

REPORT INFORMATION
  Report Type: Spontaneous
  Country: ES (occurrence: ES)
  Receive Date: 20130314
  Receipt Date: 20130314
  Transmission Date: 20140127
  Serious: Yes (Other)
  Sender: FDA-Public Use
  Company Number: ES-SANOFI-AVENTIS-2013SA023586

PATIENT
  Age: 72 Year
  Sex: Male

DRUGS (5)
  1. CLEXANE [Suspect]
     Indication: PROPHYLAXIS
     Dosage: 40MG CENA
     Route: 058
     Dates: start: 20121011, end: 20121030
  2. CEFTRIAXONE [Suspect]
     Indication: INTERVERTEBRAL DISCITIS
     Route: 042
     Dates: start: 20121011, end: 20121025
  3. METAMIZOLE [Suspect]
     Indication: PRODUCT USED FOR UNKNOWN INDICATION
     Route: 042
     Dates: start: 20121011, end: 20121024
  4. PARACETAMOL [Suspect]
     Indication: PRODUCT USED FOR UNKNOWN INDICATION
     Dosage: 1GRAMO CADA 8 HORAS
     Route: 042
     Dates: start: 20121011, end: 20121024
  5. PANTOPRAZOLE [Suspect]
     Indication: PRODUCT USED FOR UNKNOWN INDICATION
     Dosage: 40MG
     Route: 042
     Dates: start: 20121011, end: 20121024

REACTIONS (1)
  - Hepatitis cholestatic [Recovered/Resolved]
